FAERS Safety Report 4452155-0 (Version None)
Quarter: 2004Q3

REPORT INFORMATION
  Report Type: 
  Country: None (occurrence: None)
  Receive Date: 20040916
  Receipt Date: 20040916
  Transmission Date: 20050211
  Serious: No
  Sender: FDA-Public Use
  Company Number: None

PATIENT
  Sex: Male

DRUGS (1)
  1. TC-99M TETROFOSMIN 0.23 MG TETROFOSMIN AMERSHAM [Suspect]
     Dosage: 1 ONE TIME IV
     Route: 042

REACTIONS (2)
  - LUNG DISORDER [None]
  - SCAN ABNORMAL [None]
